FAERS Safety Report 7207794-0 (Version None)
Quarter: 2011Q1

REPORT INFORMATION
  Report Type: 
  Country: None (occurrence: None)
  Receive Date: 20110104
  Receipt Date: 20101227
  Transmission Date: 20110831
  Serious: Yes (Hospitalization, Other)
  Sender: FDA-Public Use
  Company Number: DE-AMGEN-DEUSP2010012381

PATIENT

DRUGS (2)
  1. ENBREL [Suspect]
     Indication: POLYARTHRITIS
  2. ENBREL [Suspect]
     Indication: RHEUMATOID ARTHRITIS
     Dosage: 50 MG, WEEKLY
     Dates: start: 20101101, end: 20100101

REACTIONS (3)
  - NEPHRITIS [None]
  - SYNCOPE [None]
  - CYSTITIS [None]
